FAERS Safety Report 6304092-4 (Version None)
Quarter: 2009Q3

REPORT INFORMATION
  Report Type: 
  Country: None (occurrence: None)
  Receive Date: 20090810
  Receipt Date: 20090810
  Transmission Date: 20100115
  Serious: Yes (Other)
  Sender: FDA-Public Use
  Company Number: None

PATIENT
  Age: 51 Year
  Sex: Male
  Weight: 97.7 kg

DRUGS (1)
  1. AVODART [Suspect]
     Dosage: ONE BY MOUTH DAILY ABOUT THE PAST SIX MONTHS

REACTIONS (4)
  - ABDOMINAL SYMPTOM [None]
  - BACK PAIN [None]
  - CREPITATIONS [None]
  - SPINAL DISORDER [None]
